FAERS Safety Report 8134955-9 (Version None)
Quarter: 2012Q1

REPORT INFORMATION
  Report Type: 
  Country: None (occurrence: None)
  Receive Date: 20120214
  Receipt Date: 20120201
  Transmission Date: 20120608
  Serious: Yes (Other)
  Sender: FDA-Public Use
  Company Number: FR-JNJFOC-20120105219

PATIENT
  Age: 36 Year
  Sex: Female
  Weight: 63 kg

DRUGS (3)
  1. HYDROCORTISONE [Concomitant]
     Indication: PREMEDICATION
     Dates: start: 20120104
  2. REMICADE [Suspect]
     Route: 042
     Dates: start: 20110301
  3. REMICADE [Suspect]
     Indication: CROHN'S DISEASE
     Dosage: SEVENTH INFUSION
     Route: 042
     Dates: start: 20120104

REACTIONS (5)
  - GENERALISED ERYTHEMA [None]
  - HYPERSENSITIVITY [None]
  - INFUSION RELATED REACTION [None]
  - MALAISE [None]
  - HYPERHIDROSIS [None]
